FAERS Safety Report 15185514 (Version 1)
Quarter: 2018Q3

REPORT INFORMATION
  Report Type: Spontaneous
  Country: JP (occurrence: JP)
  Receive Date: 20180723
  Receipt Date: 20180723
  Transmission Date: 20181010
  Serious: Yes (Death, Other)
  Sender: FDA-Public Use
  Company Number: JP-SHIRE-JP201810809

PATIENT

DRUGS (3)
  1. MIYA?BM [Concomitant]
     Active Substance: CLOSTRIDIUM BUTYRICUM SPORES STRAIN M-55
     Indication: COLITIS ULCERATIVE
     Dosage: 1 DF, 1X/DAY:QD
     Route: 065
     Dates: start: 20180216, end: 20180403
  2. LIALDA [Suspect]
     Active Substance: MESALAMINE
     Dosage: 2400 MG, 1X/DAY:QD
     Route: 048
  3. LIALDA [Suspect]
     Active Substance: MESALAMINE
     Indication: COLITIS ULCERATIVE
     Dosage: 4800 MG, 1X/DAY:QD
     Route: 048
     Dates: start: 20180216, end: 20180403

REACTIONS (4)
  - Renal impairment [Not Recovered/Not Resolved]
  - Hepatic function abnormal [Recovered/Resolved]
  - Cytomegalovirus infection [Fatal]
  - Pneumonia [Fatal]

NARRATIVE: CASE EVENT DATE: 20180226
